FAERS Safety Report 9699050 (Version 2)
Quarter: 2013Q4

REPORT INFORMATION
  Report Type: Spontaneous
  Country: US (occurrence: US)
  Receive Date: 20131120
  Receipt Date: 20131202
  Transmission Date: 20140711
  Serious: Yes (Other)
  Sender: FDA-Public Use
  Company Number: US-VERTEX PHARMACEUTICALS INC-2013-011191

PATIENT
  Age: 49 Year
  Sex: Female

DRUGS (3)
  1. INCIVEK [Suspect]
     Indication: HEPATITIS C
     Dosage: 750 MG, TID
     Dates: start: 20131003, end: 20131114
  2. RIAVIRIN [Suspect]
     Indication: HEPATITIS C
     Dosage: 5 DF, QD
     Dates: start: 20131003, end: 20131114
  3. PEGASYS [Suspect]
     Indication: HEPATITIS C
     Dosage: 180 ?G, QW
     Route: 058
     Dates: start: 20131003, end: 20131114

REACTIONS (10)
  - Rash generalised [Recovered/Resolved]
  - Decreased appetite [Recovered/Resolved]
  - Amnesia [Recovered/Resolved]
  - Gait disturbance [Recovered/Resolved]
  - Malaise [Unknown]
  - Burning sensation [Recovered/Resolved]
  - Face oedema [Recovered/Resolved]
  - Diarrhoea [Recovered/Resolved]
  - Painful defaecation [Recovered/Resolved]
  - Erythema [Recovered/Resolved]
